FAERS Safety Report 19893789 (Version 2)
Quarter: 2021Q4

REPORT INFORMATION
  Report Type: Report from Study
  Country: CH (occurrence: CH)
  Receive Date: 20210928
  Receipt Date: 20211004
  Transmission Date: 20220303
  Serious: Yes (Hospitalization, Other)
  Sender: FDA-Public Use
  Company Number: CH-BRISTOL-MYERS SQUIBB COMPANY-BMS-2021-087216

PATIENT
  Age: 54 Year
  Sex: Male

DRUGS (2)
  1. NIVOLUMAB [Suspect]
     Active Substance: NIVOLUMAB
     Indication: Metastatic renal cell carcinoma
     Dosage: 480 MILLIGRAM
     Route: 042
     Dates: start: 20200731, end: 20210625
  2. IPILIMUMAB [Suspect]
     Active Substance: IPILIMUMAB
     Indication: Metastatic renal cell carcinoma
     Dosage: 79 MILLIGRAM
     Route: 042
     Dates: start: 20200817, end: 20210625

REACTIONS (1)
  - Immune-mediated hepatitis [Recovered/Resolved with Sequelae]

NARRATIVE: CASE EVENT DATE: 20210831
